FAERS Safety Report 5583383-9 (Version None)
Quarter: 2007Q4

REPORT INFORMATION
  Report Type: 
  Country: None (occurrence: None)
  Receive Date: 20071231
  Receipt Date: 20071219
  Transmission Date: 20080405
  Serious: Yes (Hospitalization)
  Sender: FDA-Public Use
  Company Number: TPA2007A02535

PATIENT
  Age: 58 Year
  Sex: Female
  Weight: 134.2647 kg

DRUGS (6)
  1. ACTOS [Suspect]
     Indication: TYPE 2 DIABETES MELLITUS
     Dosage: 45 MG, 1 IN 1 D, PER ORAL
     Route: 048
  2. GLYBURIDE/METFORMIN (METFORMIN, GLIBENCLAMIDE) [Concomitant]
  3. HYDROCODONE BITARTRATE [Concomitant]
  4. XOPENEX HSA (LEVOSALBUTAMOL) [Concomitant]
  5. ZYRTEC [Concomitant]
  6. NASONEX [Concomitant]

REACTIONS (6)
  - ABSCESS [None]
  - DENTAL CARIES [None]
  - GINGIVAL DISORDER [None]
  - GINGIVAL RECESSION [None]
  - OOPHORECTOMY [None]
  - SENSITIVITY OF TEETH [None]
